FAERS Safety Report 25324949 (Version 2)
Quarter: 2025Q2

REPORT INFORMATION
  Report Type: Report from Study
  Country: US (occurrence: US)
  Receive Date: 20250516
  Receipt Date: 20250611
  Transmission Date: 20250716
  Serious: Yes (Hospitalization)
  Sender: EISAI
  Company Number: US-Eisai-EC-2025-188155

PATIENT
  Age: 62 Year
  Sex: Female

DRUGS (2)
  1. LENVIMA [Suspect]
     Active Substance: LENVATINIB
     Indication: Adrenocortical carcinoma
     Dates: start: 20250407
  2. KEYTRUDA [Concomitant]
     Active Substance: PEMBROLIZUMAB
     Indication: Adrenocortical carcinoma

REACTIONS (3)
  - Hypertension [Not Recovered/Not Resolved]
  - Dry mouth [Unknown]
  - Dysphonia [Unknown]

NARRATIVE: CASE EVENT DATE: 20250401
